FAERS Safety Report 4339607-9 (Version None)
Quarter: 2004Q2

REPORT INFORMATION
  Report Type: 
  Country: None (occurrence: None)
  Receive Date: 20040415
  Receipt Date: 20040107
  Transmission Date: 20050107
  Serious: Yes (Hospitalization)
  Sender: FDA-Public Use
  Company Number: FR-MERCK-0401FRA00011

PATIENT
  Age: 53 Year
  Sex: Male
  Weight: 84 kg

DRUGS (9)
  1. ABACAVIR SULFATE [Suspect]
     Indication: HIV INFECTION
     Route: 048
  2. CRIXIVAN [Suspect]
     Indication: HIV INFECTION
     Route: 048
  3. LAMIVUDINE [Suspect]
     Indication: HIV INFECTION
     Route: 048
  4. MORPHINE SULFATE [Concomitant]
     Route: 048
  5. PEGINTERFERON ALFA-2B [Suspect]
     Indication: HEPATITIS C
     Route: 058
     Dates: start: 20030401
  6. RIBAVIRIN [Concomitant]
     Indication: HEPATITIS C
     Route: 048
     Dates: start: 20030401
  7. RITONAVIR [Suspect]
     Indication: HIV INFECTION
     Route: 048
  8. SULFAMETHOXAZOLE AND TRIMETHOPRIM [Concomitant]
     Route: 048
  9. TENOFOVIR DISOPROXIL FUMARATE [Suspect]
     Indication: HIV INFECTION
     Route: 048

REACTIONS (2)
  - LOCALISED OSTEOARTHRITIS [None]
  - TENOSYNOVITIS [None]
